FAERS Safety Report 11314583 (Version 1)
Quarter: 2015Q3

REPORT INFORMATION
  Report Type: Spontaneous
  Country: US (occurrence: US)
  Receive Date: 20150727
  Receipt Date: 20150727
  Transmission Date: 20151125
  Serious: Yes (Hospitalization, Other)
  Sender: FDA-Public Use
  Company Number: US-SA-2015SA109417

PATIENT
  Age: 72 Year
  Sex: Female

DRUGS (3)
  1. SOLOSTAR [Concomitant]
     Active Substance: DEVICE
     Indication: TYPE 2 DIABETES MELLITUS
  2. HUMULIN NOS [Concomitant]
     Active Substance: INSULIN HUMAN
     Dosage: DOSE:30 UNIT(S)
  3. LANTUS SOLOSTAR [Suspect]
     Active Substance: INSULIN GLARGINE
     Indication: TYPE 2 DIABETES MELLITUS
     Dosage: TREATMENT START DATE: 4-5 YEARS DOSE:60 UNIT(S)
     Route: 065

REACTIONS (6)
  - Fall [Unknown]
  - Pneumonia [Unknown]
  - Memory impairment [Unknown]
  - Bronchitis [Unknown]
  - Daydreaming [Unknown]
  - Loss of control of legs [Unknown]

NARRATIVE: CASE EVENT DATE: 201403
